FAERS Safety Report 8922560 (Version 13)
Quarter: 2014Q3

REPORT INFORMATION
  Report Type: Report from Study
  Country: MX (occurrence: MX)
  Receive Date: 20121123
  Receipt Date: 20140908
  Transmission Date: 20150326
  Serious: Yes (Other)
  Sender: FDA-Public Use
  Company Number: PHHY2012MX106514

PATIENT
  Age: 9 Year
  Sex: Female

DRUGS (9)
  1. MIRCERA [Concomitant]
     Active Substance: PEGZEREPOETIN ALFA
     Indication: NEUTROPHIL COUNT ABNORMAL
     Dosage: 1 UKN, QMO
  2. PREDNISONE. [Concomitant]
     Active Substance: PREDNISONE
     Indication: NEUTROPHIL COUNT DECREASED
     Dosage: 0.5 UKN, UNK
  3. PREDNISONE. [Concomitant]
     Active Substance: PREDNISONE
     Indication: PLATELET COUNT DECREASED
  4. SANDIMMUNE NEORAL [Suspect]
     Active Substance: CYCLOSPORINE
     Dosage: 1.1 ML, DAILY
     Route: 048
     Dates: start: 201303
  5. SANDIMMUNE NEORAL [Suspect]
     Active Substance: CYCLOSPORINE
     Indication: APLASTIC ANAEMIA
     Dosage: 1.4 ML, DAILY
     Route: 048
     Dates: start: 201207, end: 201303
  6. KLARICID [Concomitant]
     Active Substance: CLARITHROMYCIN
     Dosage: 8 ML, QD
     Dates: start: 201302
  7. RHINOCORT [Concomitant]
     Active Substance: BUDESONIDE
     Indication: NASAL CONGESTION
     Dosage: 2 DF, UNK
     Route: 045
     Dates: start: 201302
  8. FOLIC ACID. [Concomitant]
     Active Substance: FOLIC ACID
     Dosage: 1 DF, DAILY
     Dates: start: 201211
  9. FILGRASTIM [Concomitant]
     Active Substance: FILGRASTIM
     Indication: NEUTROPHIL COUNT ABNORMAL
     Dosage: 1 UKN, UNK

REACTIONS (32)
  - Drug dependence [Recovered/Resolved]
  - Incorrect drug administration duration [Recovered/Resolved]
  - Gastritis [Recovering/Resolving]
  - Nausea [Unknown]
  - Pallor [Not Recovered/Not Resolved]
  - Rash [Not Recovered/Not Resolved]
  - Eye swelling [Not Recovered/Not Resolved]
  - Dizziness [Not Recovered/Not Resolved]
  - Loose tooth [Recovered/Resolved]
  - Decreased appetite [Not Recovered/Not Resolved]
  - Haemoglobin decreased [Unknown]
  - Haemorrhage [Recovered/Resolved]
  - Swelling face [Not Recovered/Not Resolved]
  - Melanocytic naevus [Not Recovered/Not Resolved]
  - Atopy [Unknown]
  - Nasal congestion [Unknown]
  - Dental caries [Not Recovered/Not Resolved]
  - Diarrhoea [Not Recovered/Not Resolved]
  - Oropharyngeal pain [Unknown]
  - Haematoma [Not Recovered/Not Resolved]
  - Vomiting [Not Recovered/Not Resolved]
  - Influenza [Recovering/Resolving]
  - White blood cell count decreased [Unknown]
  - Drug ineffective [Not Recovered/Not Resolved]
  - Aggression [Unknown]
  - Contusion [Not Recovered/Not Resolved]
  - Drug interaction [Not Recovered/Not Resolved]
  - Pyrexia [Recovered/Resolved]
  - Ear pain [Unknown]
  - Abdominal pain upper [Unknown]
  - Immunosuppressant drug level increased [Not Recovered/Not Resolved]
  - Cough [Not Recovered/Not Resolved]

NARRATIVE: CASE EVENT DATE: 20121115
